FAERS Safety Report 7442445-1 (Version None)
Quarter: 2011Q2

REPORT INFORMATION
  Report Type: 
  Country: None (occurrence: None)
  Receive Date: 20110425
  Receipt Date: 20110425
  Transmission Date: 20111010
  Serious: Yes (Other)
  Sender: FDA-Public Use
  Company Number: None

PATIENT
  Age: 73 Year
  Sex: Female
  Weight: 77 kg

DRUGS (2)
  1. LANSPRAZOLE [Suspect]
     Indication: PROPHYLAXIS AGAINST GASTROINTESTINAL ULCER
     Dosage: 30 MG ONCE DAILY OTHER
     Route: 050
     Dates: start: 20110420, end: 20110421
  2. LANSPRAZOLE [Suspect]
     Indication: STRESS ULCER
     Dosage: 30 MG ONCE DAILY OTHER
     Route: 050
     Dates: start: 20110420, end: 20110421

REACTIONS (2)
  - FEEDING TUBE COMPLICATION [None]
  - PRODUCT SOLUBILITY ABNORMAL [None]
